FAERS Safety Report 12995657 (Version 1)
Quarter: 2016Q4

REPORT INFORMATION
  Report Type: Spontaneous
  Country: IT (occurrence: IT)
  Receive Date: 20161202
  Receipt Date: 20161202
  Transmission Date: 20170207
  Serious: Yes (Hospitalization, Other)
  Sender: FDA-Public Use
  Company Number: IT-ELI_LILLY_AND_COMPANY-IT201611008980

PATIENT
  Age: 77 Year
  Sex: Male

DRUGS (2)
  1. CIALIS [Suspect]
     Active Substance: TADALAFIL
     Indication: ERECTILE DYSFUNCTION
     Dosage: 20 MG, UNKNOWN
     Route: 065
  2. COUMADIN [Concomitant]
     Active Substance: WARFARIN SODIUM
     Indication: PRODUCT USED FOR UNKNOWN INDICATION
     Route: 065

REACTIONS (19)
  - Abdominal distension [Unknown]
  - Loss of consciousness [Unknown]
  - Anaphylactic shock [Unknown]
  - Syncope [Unknown]
  - Local swelling [Unknown]
  - Blood disorder [Unknown]
  - Fall [Unknown]
  - Visual impairment [Unknown]
  - Chest pain [Unknown]
  - Dysphagia [Unknown]
  - Blood pressure abnormal [Unknown]
  - Dyspnoea [Unknown]
  - Wrong technique in product usage process [Unknown]
  - Pharyngeal oedema [Unknown]
  - Coagulopathy [Unknown]
  - Dermatitis allergic [Recovered/Resolved]
  - Joint swelling [Unknown]
  - Thrombosis [Unknown]
  - Capillary disorder [Unknown]
